FAERS Safety Report 5139242-9 (Version None)
Quarter: 2006Q4

REPORT INFORMATION
  Report Type: 
  Country: None (occurrence: None)
  Receive Date: 20061024
  Receipt Date: 20061013
  Transmission Date: 20070319
  Serious: Yes (Death)
  Sender: FDA-Public Use
  Company Number: 2006US002284

PATIENT
  Age: 27 Year
  Sex: Male

DRUGS (3)
  1. PROGRAF [Suspect]
     Dosage: 3MG, UID/QD, ORAL
     Route: 048
  2. SIROLIMUS(SIROLIMUS) [Suspect]
     Indication: GRAFT VERSUS HOST DISEASE
     Dosage: 3 MG, UID/QD, UNK
  3. VORICONAZOLE(VORICONAZOLE) [Suspect]
     Indication: ASPERGILLOSIS
     Dosage: 600 MG, UID/QD, UNK

REACTIONS (8)
  - BRONCHIAL OBSTRUCTION [None]
  - BRONCHOPNEUMONIA [None]
  - CATHETER SEPSIS [None]
  - COAGULOPATHY [None]
  - PULMONARY ALVEOLAR HAEMORRHAGE [None]
  - PULMONARY FIBROSIS [None]
  - RENAL FAILURE ACUTE [None]
  - STAPHYLOCOCCAL SEPSIS [None]
